FAERS Safety Report 23553842 (Version 1)
Quarter: 2024Q1

REPORT INFORMATION
  Report Type: Spontaneous
  Country: CA (occurrence: CA)
  Receive Date: 20240222
  Receipt Date: 20240222
  Transmission Date: 20240410
  Serious: Yes (Other)
  Sender: FDA-Public Use
  Company Number: CA-PFIZER INC-202400046505

PATIENT
  Age: 58 Year
  Sex: Male

DRUGS (4)
  1. SULFASALAZINE [Suspect]
     Active Substance: SULFASALAZINE
     Dosage: UNK
  2. PREDNISONE [Suspect]
     Active Substance: PREDNISONE
     Dosage: 10 MG, 1X/DAY
  3. PREDNISONE [Suspect]
     Active Substance: PREDNISONE
     Dosage: 35 MG, 1X/DAY
     Route: 048
  4. FOLIC ACID [Suspect]
     Active Substance: FOLIC ACID
     Dosage: UNK

REACTIONS (6)
  - Haemolytic anaemia [Unknown]
  - Paroxysmal nocturnal haemoglobinuria [Unknown]
  - Myelodysplastic syndrome with multilineage dysplasia [Unknown]
  - Cough [Not Recovered/Not Resolved]
  - Rhinitis [Not Recovered/Not Resolved]
  - Jaundice [Unknown]

NARRATIVE: CASE EVENT DATE: 20240101
